FAERS Safety Report 9708323 (Version 1)
Quarter: 2013Q4

REPORT INFORMATION
  Report Type: Spontaneous
  Country: US (occurrence: US)
  Receive Date: 20131125
  Receipt Date: 20131125
  Transmission Date: 20140711
  Serious: Yes (Other)
  Sender: FDA-Public Use
  Company Number: US-PFIZER INC-2013333540

PATIENT
  Age: 83 Year
  Sex: Female
  Weight: 56.2 kg

DRUGS (3)
  1. ESTRING [Suspect]
     Indication: BLADDER PROLAPSE
     Dosage: UNK DF, EVERY 3 MONTHS
     Route: 067
     Dates: start: 2009
  2. FLUPHENAZINE [Concomitant]
     Dosage: 25 MG, 1X/DAY
  3. LISINOPRIL [Concomitant]
     Indication: HYPERTENSION
     Dosage: UNK, 1X/DAY

REACTIONS (4)
  - Dementia Alzheimer^s type [Not Recovered/Not Resolved]
  - Urinary tract infection [Recovered/Resolved]
  - Activities of daily living impaired [Not Recovered/Not Resolved]
  - Speech disorder [Not Recovered/Not Resolved]
